FAERS Safety Report 8599286-1 (Version None)
Quarter: 2012Q3

REPORT INFORMATION
  Report Type: 
  Country: None (occurrence: None)
  Receive Date: 20120816
  Receipt Date: 20120725
  Transmission Date: 20120928
  Serious: No
  Sender: FDA-Public Use
  Company Number: US-AMGEN-USASP2012046557

PATIENT
  Age: 2 Year
  Sex: Male

DRUGS (1)
  1. NEUPOGEN [Suspect]
     Indication: NEUTROPENIA
     Dosage: 75 MUG, QWK
     Dates: start: 20120602

REACTIONS (1)
  - PSYCHOMOTOR HYPERACTIVITY [None]
